FAERS Safety Report 14607077 (Version 2)
Quarter: 2018Q2

REPORT INFORMATION
  Report Type: Spontaneous
  Country: CZ (occurrence: CZ)
  Receive Date: 20180307
  Receipt Date: 20180410
  Transmission Date: 20180711
  Serious: Yes (Hospitalization, Other)
  Sender: FDA-Public Use
  Company Number: CZ-BAYER-2018-037628

PATIENT
  Age: 60 Year
  Sex: Male

DRUGS (14)
  1. ENOXAPARIN [Concomitant]
     Active Substance: ENOXAPARIN
     Indication: DEEP VEIN THROMBOSIS
     Dosage: 0.8 ML, BID
     Route: 058
  2. CIPROFLOXACIN. [Suspect]
     Active Substance: CIPROFLOXACIN
     Indication: EVIDENCE BASED TREATMENT
     Dosage: 500 MG, TID
     Route: 048
  3. HEPARIN [Concomitant]
     Active Substance: HEPARIN SODIUM
     Indication: HAEMARTHROSIS
     Dosage: UNK
     Route: 065
  4. VANCOMYCIN [Suspect]
     Active Substance: VANCOMYCIN
     Indication: ENDOCARDITIS
  5. GENTAMICIN. [Suspect]
     Active Substance: GENTAMICIN
     Indication: ENTEROCOCCAL INFECTION
     Dosage: UNK
     Route: 065
  6. CIPROFLOXACIN. [Suspect]
     Active Substance: CIPROFLOXACIN
     Indication: ENDOCARDITIS
  7. AMPICILLIN AND SULBACTAM [Suspect]
     Active Substance: AMPICILLIN SODIUM\SULBACTAM SODIUM
     Indication: ARTHRITIS
  8. VANCOMYCIN [Suspect]
     Active Substance: VANCOMYCIN
     Indication: EVIDENCE BASED TREATMENT
     Dosage: 1.5 G, BID
     Route: 042
  9. VANCOMYCIN [Suspect]
     Active Substance: VANCOMYCIN
     Indication: SALMONELLA TEST POSITIVE
  10. PIPERACILLIN AND TAZOBACTAM [Suspect]
     Active Substance: PIPERACILLIN SODIUM\TAZOBACTAM SODIUM
     Indication: ENTEROCOCCAL INFECTION
     Dosage: UNK
     Route: 065
  11. AMPICILLIN AND SULBACTAM [Suspect]
     Active Substance: AMPICILLIN SODIUM\SULBACTAM SODIUM
     Indication: ENTEROCOCCAL INFECTION
     Dosage: UNK
     Route: 065
  12. LINEZOLID. [Suspect]
     Active Substance: LINEZOLID
     Indication: ENTEROCOCCAL INFECTION
     Dosage: UNK
     Route: 065
  13. CIPROFLOXACIN. [Suspect]
     Active Substance: CIPROFLOXACIN
     Indication: SALMONELLA TEST POSITIVE
  14. CIPROFLOXACIN. [Suspect]
     Active Substance: CIPROFLOXACIN
     Indication: ANTIBIOTIC THERAPY

REACTIONS (6)
  - Nutritional condition abnormal [Recovering/Resolving]
  - Weight decreased [Unknown]
  - Hepatotoxicity [Recovered/Resolved]
  - Decreased appetite [Recovered/Resolved]
  - Drug ineffective [Recovered/Resolved]
  - Diarrhoea [Recovered/Resolved]

NARRATIVE: CASE EVENT DATE: 2017
